FAERS Safety Report 9929520 (Version 1)
Quarter: 2014Q1

REPORT INFORMATION
  Report Type: Spontaneous
  Country: US (occurrence: US)
  Receive Date: 20140227
  Receipt Date: 20140227
  Transmission Date: 20141002
  Serious: Yes (Death, Other)
  Sender: FDA-Public Use
  Company Number: US-BAYER-2014-028610

PATIENT
  Age: 55 Year
  Sex: Female

DRUGS (4)
  1. NEXAVAR [Suspect]
     Indication: SPINDLE CELL SARCOMA
     Dosage: 200 MG, BID
     Route: 048
  2. NEXAVAR [Suspect]
     Indication: SPINDLE CELL SARCOMA
     Dosage: 200 MG, QD
     Route: 048
  3. TORISEL [Suspect]
     Indication: SPINDLE CELL SARCOMA
     Dosage: 20 MG ON DAY 1, 8 AND 15
     Route: 042
  4. AVASTIN [Suspect]
     Indication: SPINDLE CELL SARCOMA
     Dosage: 10 MG/KG EVERY 21 DAYS
     Route: 042

REACTIONS (8)
  - Hypertension [None]
  - Palmar-plantar erythrodysaesthesia syndrome [None]
  - Proteinuria [Not Recovered/Not Resolved]
  - Hypoalbuminaemia [Not Recovered/Not Resolved]
  - Acute myocardial infarction [Fatal]
  - Dysgeusia [Not Recovered/Not Resolved]
  - Palmar-plantar erythrodysaesthesia syndrome [Not Recovered/Not Resolved]
  - Myalgia [Not Recovered/Not Resolved]
